FAERS Safety Report 18638365 (Version 1)
Quarter: 2020Q4

REPORT INFORMATION
  Report Type: Report from Study
  Country: US (occurrence: US)
  Receive Date: 20201218
  Receipt Date: 20201218
  Transmission Date: 20210114
  Serious: No
  Sender: FDA-Public Use
  Company Number: US-REGENERON PHARMACEUTICALS, INC.-2020-85296

PATIENT

DRUGS (4)
  1. LUMASON [Concomitant]
     Active Substance: SULFUR HEXAFLUORIDE
     Indication: PRODUCT USED FOR UNKNOWN INDICATION
     Dosage: UNK
  2. ZYTIGA [Concomitant]
     Active Substance: ABIRATERONE ACETATE
     Indication: PRODUCT USED FOR UNKNOWN INDICATION
     Dosage: UNK
  3. PREDNISONE. [Concomitant]
     Active Substance: PREDNISONE
     Indication: PRODUCT USED FOR UNKNOWN INDICATION
     Dosage: UNK
  4. EYLEA [Suspect]
     Active Substance: AFLIBERCEPT
     Indication: PROSTATE CANCER
     Dosage: 2 MG/0.05ML SDV, EVERY 4-6 WEEKS INTO EACH EYE
     Route: 031
     Dates: start: 20190126

REACTIONS (2)
  - Product dose omission issue [Not Recovered/Not Resolved]
  - Off label use [Unknown]
